FAERS Safety Report 12356794 (Version 1)
Quarter: 2016Q2

REPORT INFORMATION
  Report Type: Spontaneous
  Country: US (occurrence: US)
  Receive Date: 20160511
  Receipt Date: 20160511
  Transmission Date: 20160815
  Serious: Yes (Other)
  Sender: FDA-Public Use
  Company Number: US-SA-2016SA092076

PATIENT
  Sex: Female

DRUGS (5)
  1. COUMADIN [Concomitant]
     Active Substance: WARFARIN SODIUM
     Dates: start: 2015
  2. ELIQUIS [Concomitant]
     Active Substance: APIXABAN
  3. PLAVIX [Suspect]
     Active Substance: CLOPIDOGREL BISULFATE
     Indication: CARDIAC DISORDER
     Route: 048
  4. NORVASC [Concomitant]
     Active Substance: AMLODIPINE BESYLATE
  5. METOPROLOL. [Concomitant]
     Active Substance: METOPROLOL

REACTIONS (9)
  - Gastric cancer [Unknown]
  - Confusional state [Unknown]
  - Asthenia [Unknown]
  - Memory impairment [Unknown]
  - Fatigue [Unknown]
  - Rectal haemorrhage [Unknown]
  - International normalised ratio fluctuation [Unknown]
  - Myocardial infarction [Unknown]
  - Nervousness [Unknown]
